FAERS Safety Report 7930473-9 (Version None)
Quarter: 2011Q4

REPORT INFORMATION
  Report Type: 
  Country: None (occurrence: None)
  Receive Date: 20111121
  Receipt Date: 20111107
  Transmission Date: 20120403
  Serious: Yes (Life-Threatening, Hospitalization)
  Sender: FDA-Public Use
  Company Number: US-ROCHE-1012087

PATIENT
  Sex: Female

DRUGS (3)
  1. HERCEPTIN [Suspect]
     Indication: NEOPLASM
     Dosage: OVER 90MIN  ON DAY 1 EVERY WEEK X 3
     Route: 042
     Dates: start: 20030731
  2. PACLITAXEL [Suspect]
     Indication: NEOPLASM
     Dosage: OVER 3HR ON DAY 1
     Route: 042
     Dates: start: 20030731
  3. INTERLEUKIN-12 [Suspect]
     Indication: NEOPLASM
     Dosage: ON DAYS 2, 5, 9. 12, 16, AND 19, STARTING ON CYCLE 2
     Route: 058
     Dates: start: 20030731

REACTIONS (1)
  - EMBOLISM [None]
